FAERS Safety Report 9375828 (Version 1)
Quarter: 2013Q2

REPORT INFORMATION
  Report Type: Spontaneous
  Country: US (occurrence: US)
  Receive Date: 20130628
  Receipt Date: 20130628
  Transmission Date: 20140414
  Serious: No
  Sender: FDA-Public Use
  Company Number: US-PFIZER INC-2013191889

PATIENT
  Sex: Male

DRUGS (3)
  1. LYRICA [Suspect]
     Indication: BACK DISORDER
     Dosage: 100 MG, 2X/DAY
  2. LYRICA [Suspect]
     Indication: DIABETIC FOOT
  3. LYRICA [Suspect]
     Indication: PAIN

REACTIONS (7)
  - Somnolence [Not Recovered/Not Resolved]
  - Hypersomnia [Not Recovered/Not Resolved]
  - Disturbance in attention [Not Recovered/Not Resolved]
  - Dry mouth [Unknown]
  - Dizziness [Unknown]
  - Local swelling [Recovering/Resolving]
  - Fatigue [Unknown]
